FAERS Safety Report 5115538-1 (Version None)
Quarter: 2006Q3

REPORT INFORMATION
  Report Type: 
  Country: None (occurrence: None)
  Receive Date: 20060927
  Receipt Date: 20060918
  Transmission Date: 20061208
  Serious: Yes (Other)
  Sender: FDA-Public Use
  Company Number: BR-JNJFOC-20060905150

PATIENT
  Age: 34 Year
  Sex: Female
  Weight: 80 kg

DRUGS (3)
  1. ACETAMINOPHEN W/ CODEINE [Suspect]
     Indication: HIP FRACTURE
     Dosage: EVERY 4 HOURS
     Route: 048
  2. DICLOFENAC [Concomitant]
     Indication: HIP FRACTURE
     Dosage: FOR 13 DAYS
     Route: 048
  3. FERROUS SULFATE TAB [Concomitant]
     Indication: HAEMATOCRIT DECREASED
     Dosage: FOR 10 DAYS
     Route: 048

REACTIONS (3)
  - HAEMATOCRIT DECREASED [None]
  - HEADACHE [None]
  - HYPERTENSION [None]
